FAERS Safety Report 6893533-X (Version None)
Quarter: 2010Q3

REPORT INFORMATION
  Report Type: 
  Country: None (occurrence: None)
  Receive Date: 20100731
  Receipt Date: 20091008
  Transmission Date: 20110219
  Serious: Yes (Other)
  Sender: FDA-Public Use
  Company Number: US-PFIZER INC-2009219040

PATIENT
  Age: 57 Year
  Sex: Male

DRUGS (6)
  1. LIPITOR [Suspect]
     Dates: start: 19990101
  2. VASOTEC [Concomitant]
     Dosage: UNK
  3. COREG [Concomitant]
     Dosage: UNK
  4. LEXAPRO [Concomitant]
     Dosage: UNK
  5. ACETYLSALICYLIC ACID [Concomitant]
  6. SPIRONOLACTONE [Concomitant]

REACTIONS (1)
  - TENDON RUPTURE [None]
